FAERS Safety Report 10558436 (Version 2)
Quarter: 2015Q1

REPORT INFORMATION
  Report Type: Spontaneous
  Country: US (occurrence: US)
  Receive Date: 20141031
  Receipt Date: 20150120
  Transmission Date: 20150720
  Serious: Yes (Other)
  Sender: FDA-Public Use
  Company Number: US-ABBVIE-14P-163-1301320-00

PATIENT
  Age: 57 Year
  Sex: Male

DRUGS (1)
  1. ANDROGEL [Suspect]
     Active Substance: TESTOSTERONE
     Indication: BLOOD TESTOSTERONE DECREASED
     Route: 061
     Dates: start: 20070802, end: 201407

REACTIONS (15)
  - Fear [Unknown]
  - Social problem [Unknown]
  - Pain [Unknown]
  - Anxiety [Unknown]
  - Cerebrovascular accident [Unknown]
  - Transient ischaemic attack [Unknown]
  - Off label use [Unknown]
  - Loss of employment [Unknown]
  - Injury [Unknown]
  - Emotional distress [Unknown]
  - Impaired work ability [Unknown]
  - Transient ischaemic attack [Unknown]
  - Anhedonia [Unknown]
  - Cardiac disorder [Unknown]
  - Economic problem [Unknown]

NARRATIVE: CASE EVENT DATE: 20100201
